FAERS Safety Report 4805557-4 (Version None)
Quarter: 2005Q4

REPORT INFORMATION
  Report Type: 
  Country: None (occurrence: None)
  Receive Date: 20051018
  Receipt Date: 20051003
  Transmission Date: 20060501
  Serious: Yes (Death, Hospitalization)
  Sender: FDA-Public Use
  Company Number: 2005-01315

PATIENT
  Age: 50 Year
  Sex: Male
  Weight: 77.9 kg

DRUGS (7)
  1. VELCADE [Suspect]
     Indication: MULTIPLE MYELOMA
     Dosage: 1.30 MG/M2, 2/WEEK, INTRAVENOUS
     Route: 042
     Dates: start: 20050516, end: 20050526
  2. SCIO-469 [Suspect]
     Indication: MULTIPLE MYELOMA
     Dosage: 60.00 + 1.30MG, TID, ORAL           SEE IMAGE
     Route: 048
     Dates: start: 20050516, end: 20050527
  3. SCIO-469 [Suspect]
     Indication: MULTIPLE MYELOMA
     Dosage: 60.00 + 1.30MG, TID, ORAL           SEE IMAGE
     Route: 048
     Dates: start: 20050426, end: 20050530
  4. ZOLOFT [Concomitant]
  5. FENTANYL [Concomitant]
  6. OXYCONTIN [Concomitant]
  7. VICODIN [Concomitant]

REACTIONS (20)
  - ACTIVATED PARTIAL THROMBOPLASTIN TIME PROLONGED [None]
  - ANXIETY [None]
  - ASTHENIA [None]
  - BLOOD CREATININE INCREASED [None]
  - CONFUSIONAL STATE [None]
  - COUGH [None]
  - DISEASE PROGRESSION [None]
  - DIZZINESS [None]
  - GAIT DISTURBANCE [None]
  - HAEMOGLOBIN DECREASED [None]
  - HEADACHE [None]
  - HYPERCALCAEMIA [None]
  - INSOMNIA [None]
  - MENTAL STATUS CHANGES [None]
  - MULTIPLE MYELOMA [None]
  - PLATELET COUNT DECREASED [None]
  - PROTHROMBIN TIME PROLONGED [None]
  - PYREXIA [None]
  - RESTLESS LEGS SYNDROME [None]
  - SEPSIS [None]
